FAERS Safety Report 9455765 (Version 2)
Quarter: 2013Q3

REPORT INFORMATION
  Report Type: Spontaneous
  Country: FR (occurrence: FR)
  Receive Date: 20130813
  Receipt Date: 20130819
  Transmission Date: 20140515
  Serious: Yes (Death, Hospitalization)
  Sender: FDA-Public Use
  Company Number: FR-JNJFOC-20130802607

PATIENT
  Age: 84 Year
  Sex: Male

DRUGS (10)
  1. RISPERDAL [Suspect]
     Indication: PRODUCT USED FOR UNKNOWN INDICATION
     Dosage: EVENING
     Route: 048
     Dates: start: 20130607, end: 20130611
  2. DEROXAT [Suspect]
     Indication: PRODUCT USED FOR UNKNOWN INDICATION
     Dosage: AN HALF
     Route: 048
     Dates: end: 20130612
  3. GLUCOPHAGE [Concomitant]
     Indication: PRODUCT USED FOR UNKNOWN INDICATION
     Route: 065
  4. GLUCOPHAGE [Concomitant]
     Indication: PRODUCT USED FOR UNKNOWN INDICATION
     Route: 065
  5. JANUVIA [Concomitant]
     Indication: PRODUCT USED FOR UNKNOWN INDICATION
     Route: 065
  6. KARDEGIC [Concomitant]
     Indication: PRODUCT USED FOR UNKNOWN INDICATION
     Route: 048
  7. LIPANTHYL [Concomitant]
     Indication: PRODUCT USED FOR UNKNOWN INDICATION
     Dosage: 200 (UNITS UNSPECIFIED)
     Route: 065
  8. MECIR [Concomitant]
     Indication: PRODUCT USED FOR UNKNOWN INDICATION
     Route: 065
  9. OMEPRAZOLE [Concomitant]
     Indication: PRODUCT USED FOR UNKNOWN INDICATION
     Route: 065
  10. TIAPRIDAL [Concomitant]
     Indication: AGITATION
     Dosage: 100MG, AN HALF PER DAY
     Route: 065

REACTIONS (7)
  - Renal failure [Fatal]
  - Coma [Fatal]
  - Somnolence [Fatal]
  - Agitation [Fatal]
  - Bronchopneumonia [Fatal]
  - Frontotemporal dementia [Unknown]
  - Respiratory depression [Unknown]
